FAERS Safety Report 8414595-4 (Version None)
Quarter: 2012Q2

REPORT INFORMATION
  Report Type: 
  Country: None (occurrence: None)
  Receive Date: 20120605
  Receipt Date: 20120530
  Transmission Date: 20120825
  Serious: Yes (Other)
  Sender: FDA-Public Use
  Company Number: JP-PFIZER INC-2012130359

PATIENT
  Age: 85 Year
  Sex: Female

DRUGS (1)
  1. NORVASC [Suspect]
     Dosage: 5 MG, DAILY
     Route: 048
     Dates: start: 20100422, end: 20120529

REACTIONS (1)
  - CALCULUS URINARY [None]
